FAERS Safety Report 9050652 (Version 1)
Quarter: 2013Q1

REPORT INFORMATION
  Report Type: Spontaneous
  Country: US (occurrence: US)
  Receive Date: 20130205
  Receipt Date: 20130205
  Transmission Date: 20140127
  Serious: Yes (Hospitalization, Disabling)
  Sender: FDA-Public Use
  Company Number: US-NICOBRDEVP-2013-01473

PATIENT
  Age: 85 Year
  Sex: Female

DRUGS (10)
  1. SIMVASTATIN (UNKNOWN) [Suspect]
     Indication: PRODUCT USED FOR UNKNOWN INDICATION
     Dosage: UNK, UNKNOWN
     Route: 065
  2. OMEPRAZOLE (UNKNOWN) [Suspect]
     Indication: PRODUCT USED FOR UNKNOWN INDICATION
     Dosage: 20 MG, DAILY
     Route: 065
  3. VENLAFAXINE HYDROCHLORIDE (UNKNOWN) [Suspect]
     Indication: PRODUCT USED FOR UNKNOWN INDICATION
     Dosage: 37.5 MG, DAILY
     Route: 065
  4. WARFARIN [Suspect]
     Indication: PRODUCT USED FOR UNKNOWN INDICATION
     Dosage: 2.5 MG, DAILY
     Route: 065
  5. ACETYLSALICYLIC ACID [Suspect]
     Indication: PRODUCT USED FOR UNKNOWN INDICATION
     Dosage: 81 MG, DAILY
     Route: 065
  6. CEFTAROLINE [Suspect]
     Indication: CELLULITIS
     Dosage: UNK, UNKNOWN
     Route: 042
  7. CARVEDILOL [Concomitant]
     Indication: PRODUCT USED FOR UNKNOWN INDICATION
     Dosage: 12.5 MG, BID
     Route: 065
  8. ANASTROZOLE [Concomitant]
     Indication: PRODUCT USED FOR UNKNOWN INDICATION
     Dosage: 1 MG, DAILY
     Route: 065
  9. CEFTRIAXON [Concomitant]
     Indication: CELLULITIS
     Dosage: UNK, UNKNOWN
     Route: 065
  10. VANCOMYCIN [Concomitant]
     Indication: CELLULITIS
     Dosage: UNK, UNKNOWN
     Route: 065

REACTIONS (4)
  - Haemarthrosis [Recovered/Resolved]
  - International normalised ratio increased [Recovered/Resolved]
  - Haemoglobin decreased [Recovered/Resolved]
  - Drug interaction [Recovered/Resolved]
